FAERS Safety Report 6194740-4 (Version None)
Quarter: 2009Q2

REPORT INFORMATION
  Report Type: 
  Country: None (occurrence: None)
  Receive Date: 20090515
  Receipt Date: 20090515
  Transmission Date: 20091009
  Serious: No
  Sender: FDA-Public Use
  Company Number: None

PATIENT
  Sex: Male
  Weight: 79.3795 kg

DRUGS (1)
  1. LEVAQUIN [Suspect]
     Indication: PNEUMONIA
     Dosage: 10 TABLETS ONE A DAY PO
     Route: 048
     Dates: start: 20090305, end: 20090315

REACTIONS (3)
  - BURNING SENSATION [None]
  - PARAESTHESIA [None]
  - SENSORY LOSS [None]
